FAERS Safety Report 8208387-9 (Version None)
Quarter: 2012Q1

REPORT INFORMATION
  Report Type: 
  Country: None (occurrence: None)
  Receive Date: 20120314
  Receipt Date: 20120307
  Transmission Date: 20120608
  Serious: Yes (Other)
  Sender: FDA-Public Use
  Company Number: US-UCBSA-053031

PATIENT
  Sex: Male

DRUGS (8)
  1. NEURONTIN [Suspect]
     Indication: HERPES ZOSTER
     Dosage: DAILY DOSE: 800 MG (100MG ONE IN MORNING, ONE IN AFTERNOON AND TWO 300MG AT NIGHT)
     Route: 048
     Dates: start: 20100101
  2. VICODIN [Suspect]
  3. NEURONTIN [Suspect]
     Indication: PAIN
     Dosage: DAILY DOSE: 800 MG (100MG ONE IN MORNING, ONE IN AFTERNOON AND TWO 300MG AT NIGHT)
     Route: 048
     Dates: start: 20100101
  4. LIDOCAINE [Concomitant]
     Indication: HYPERTENSION
     Dosage: FORM: PATCH
  5. SIMVASTATIN [Concomitant]
     Indication: BLOOD CHOLESTEROL DECREASED
  6. ENALAPRIL MALEATE [Concomitant]
     Indication: HYPERTENSION
  7. LORTAB [Suspect]
  8. VASOTECH [Concomitant]
     Indication: HYPERTENSION

REACTIONS (4)
  - THYROID CANCER [None]
  - DIZZINESS [None]
  - HERPES ZOSTER [None]
  - PAIN [None]
